FAERS Safety Report 12420594 (Version 1)
Quarter: 2016Q2

REPORT INFORMATION
  Report Type: Spontaneous
  Country: US (occurrence: US)
  Receive Date: 20160531
  Receipt Date: 20160531
  Transmission Date: 20160815
  Serious: No
  Sender: FDA-Public Use
  Company Number: US-GLAXOSMITHKLINE-US2016069506

PATIENT
  Age: 48 Year
  Sex: Male

DRUGS (5)
  1. SIMVASTATIN. [Concomitant]
     Active Substance: SIMVASTATIN
  2. HUMALOG [Concomitant]
     Active Substance: INSULIN LISPRO
  3. TRESIBA [Concomitant]
     Active Substance: INSULIN DEGLUDEC
  4. LISINOPRIL. [Concomitant]
     Active Substance: LISINOPRIL
  5. TANZEUM [Suspect]
     Active Substance: ALBIGLUTIDE
     Indication: DIABETES MELLITUS
     Dosage: 50 MG, WE
     Dates: start: 201603

REACTIONS (2)
  - Tooth extraction [Not Recovered/Not Resolved]
  - Device use error [Unknown]

NARRATIVE: CASE EVENT DATE: 20160516
